FAERS Safety Report 5097730-8 (Version None)
Quarter: 2006Q3

REPORT INFORMATION
  Report Type: 
  Country: None (occurrence: None)
  Receive Date: 20060901
  Receipt Date: 20060824
  Transmission Date: 20061208
  Serious: Yes (Other)
  Sender: FDA-Public Use
  Company Number: 14613

PATIENT
  Age: 60 Year
  Sex: Female
  Weight: 45.8133 kg

DRUGS (15)
  1. FLUOROURACIL [Suspect]
     Indication: CARCINOID TUMOUR
     Dosage: 576 MG PER_CYCLE IV
     Route: 042
     Dates: start: 20060726, end: 20060726
  2. FLUOROURACIL [Suspect]
     Indication: NEUROENDOCRINE TUMOUR
     Dosage: 576 MG PER_CYCLE IV
     Route: 042
     Dates: start: 20060726, end: 20060726
  3. FLUOROURACIL [Suspect]
     Indication: CARCINOID TUMOUR
     Dosage: 3456 MG PER_CYCLE IV
     Route: 042
     Dates: start: 20060726, end: 20060726
  4. FLUOROURACIL [Suspect]
     Indication: NEUROENDOCRINE TUMOUR
     Dosage: 3456 MG PER_CYCLE IV
     Route: 042
     Dates: start: 20060726, end: 20060726
  5. LEUCOVORIN CALCIUM [Suspect]
     Indication: CARCINOID TUMOUR
     Dosage: 288 MG PER_CYCLE IV
     Route: 042
     Dates: start: 20060726, end: 20060726
  6. LEUCOVORIN CALCIUM [Suspect]
     Indication: NEUROENDOCRINE TUMOUR
     Dosage: 288 MG PER_CYCLE IV
     Route: 042
     Dates: start: 20060726, end: 20060726
  7. OXALIPLATIN [Suspect]
     Indication: CARCINOID TUMOUR
     Dosage: 120 MG PER_CYCLE IV
     Route: 042
     Dates: start: 20060726, end: 20060726
  8. OXALIPLATIN [Suspect]
     Indication: NEUROENDOCRINE TUMOUR
     Dosage: 120 MG PER_CYCLE IV
     Route: 042
     Dates: start: 20060726, end: 20060726
  9. AVASTIN [Suspect]
     Indication: CARCINOID TUMOUR
     Dosage: 230 MG PER_CYCLE IV
     Route: 042
     Dates: start: 20060726, end: 20060726
  10. AVASTIN [Suspect]
     Indication: NEUROENDOCRINE TUMOUR
     Dosage: 230 MG PER_CYCLE IV
     Route: 042
     Dates: start: 20060726, end: 20060726
  11. LOMOTIL [Concomitant]
  12. DEXAMETHASONE TAB [Concomitant]
  13. LORAZEPAM [Concomitant]
  14. GRANISETRON [Concomitant]
  15. OCTREOTIDE ACETATE [Concomitant]

REACTIONS (2)
  - NEUTROPENIA [None]
  - WHITE BLOOD CELL COUNT DECREASED [None]
